FAERS Safety Report 9581067 (Version 2)
Quarter: 2013Q4

REPORT INFORMATION
  Report Type: Spontaneous
  Country: JP (occurrence: JP)
  Receive Date: 20131002
  Receipt Date: 20131011
  Transmission Date: 20140711
  Serious: Yes (Other)
  Sender: FDA-Public Use
  Company Number: JP-ABBVIE-13P-087-1152350-00

PATIENT
  Age: 85 Year
  Sex: Female
  Weight: 40 kg

DRUGS (6)
  1. SEVOFLURANE [Suspect]
     Indication: GENERAL ANAESTHESIA
  2. SEVOFLURANE [Suspect]
     Indication: MAINTENANCE OF ANAESTHESIA
     Dosage: 1-1.5%
  3. REMIFENTANIL [Suspect]
     Indication: MAINTENANCE OF ANAESTHESIA
     Dosage: 0.02-0.04 MCG/KG/MIN
  4. FENTANYL [Suspect]
     Indication: GENERAL ANAESTHESIA
  5. PROPOFOL [Suspect]
     Indication: GENERAL ANAESTHESIA
  6. ROCURONIUM [Suspect]
     Indication: GENERAL ANAESTHESIA

REACTIONS (1)
  - Delayed recovery from anaesthesia [Recovered/Resolved]
